FAERS Safety Report 8816631 (Version 1)
Quarter: 2012Q4

REPORT INFORMATION
  Report Type: Spontaneous
  Country: DE (occurrence: None)
  Receive Date: 20120928
  Receipt Date: 20120928
  Transmission Date: 20130627
  Serious: Yes (Other)
  Sender: FDA-Public Use
  Company Number: GER/GER/12/0026017

PATIENT
  Age: 21 Year
  Sex: Female
  Weight: 80 kg

DRUGS (4)
  1. VENLAFAXINE [Suspect]
     Indication: DEPRESSION
     Route: 048
     Dates: start: 20101022, end: 20110702
  2. VENLAFAXINE [Suspect]
     Indication: DEPRESSION
     Route: 048
  3. TAVOR (LORAZEPAM) [Concomitant]
  4. FOLIO (FOLIO) [Concomitant]

REACTIONS (2)
  - Exposure during pregnancy [None]
  - Caesarean section [None]
